FAERS Safety Report 6395093-9 (Version None)
Quarter: 2009Q4

REPORT INFORMATION
  Report Type: 
  Country: None (occurrence: None)
  Receive Date: 20091009
  Receipt Date: 20091009
  Transmission Date: 20100525
  Serious: Yes (Other)
  Sender: FDA-Public Use
  Company Number: US-PFIZER INC-2009261977

PATIENT
  Age: 53 Year
  Sex: Female
  Weight: 72.574 kg

DRUGS (2)
  1. CELEBREX [Suspect]
     Indication: ARTHRALGIA
  2. TOPROL-XL [Concomitant]

REACTIONS (3)
  - BREAST CANCER [None]
  - DIABETES MELLITUS [None]
  - RENAL CELL CARCINOMA [None]
